FAERS Safety Report 6150463-9 (Version None)
Quarter: 2009Q2

REPORT INFORMATION
  Report Type: 
  Country: None (occurrence: None)
  Receive Date: 20090409
  Receipt Date: 20090407
  Transmission Date: 20091009
  Serious: Yes (Death, Hospitalization, Other)
  Sender: FDA-Public Use
  Company Number: PHEH2009US02825

PATIENT
  Sex: Male
  Weight: 92.971 kg

DRUGS (10)
  1. TEKTURNA [Suspect]
     Indication: HYPERTENSION
     Dosage: 300/25 MG, DAILY
     Route: 048
     Dates: start: 20080509
  2. CLONIDINE [Concomitant]
     Dosage: 0.2 MG, TID
     Route: 048
  3. LASIX [Concomitant]
     Dosage: 80 MG, BID
     Route: 048
  4. LOPRESSOR [Concomitant]
     Dosage: 100 MG, BID
     Route: 048
  5. NOVOLIN N [Concomitant]
     Dosage: 30 UNIT QAM, 15 UNITS QPM
     Route: 058
  6. NOVOLIN R [Concomitant]
     Dosage: SLIDING SCALE
     Route: 058
  7. XANAX [Concomitant]
     Dosage: UNK, PRN
     Route: 048
  8. RESTORIL [Concomitant]
     Dosage: 30 MG, QHS
     Route: 048
  9. LORA TAB [Concomitant]
     Dosage: 5/325 MG, PRN
     Route: 048
  10. RENAGEL [Concomitant]
     Dosage: UNK, BEFORE MEALS
     Route: 048

REACTIONS (4)
  - BRAIN DEATH [None]
  - CEREBROVASCULAR ACCIDENT [None]
  - HEADACHE [None]
  - HYPERTENSION [None]
